FAERS Safety Report 4512424-2 (Version None)
Quarter: 2004Q4

REPORT INFORMATION
  Report Type: 
  Country: None (occurrence: None)
  Receive Date: 20041123
  Receipt Date: 20041102
  Transmission Date: 20050328
  Serious: Yes (Hospitalization)
  Sender: FDA-Public Use
  Company Number: WAES 0411ITA00005

PATIENT
  Age: 66 Year
  Sex: Male

DRUGS (6)
  1. VIOXX [Suspect]
     Indication: CARCINOMA
     Dosage: PO
     Route: 048
     Dates: start: 20031125, end: 20040930
  2. ZOCOR [Concomitant]
  3. ASPIRIN [Concomitant]
  4. ATENOLOL [Concomitant]
  5. EICOSAPENTAENOIC ACID [Concomitant]
  6. RAMIPRIL [Concomitant]

REACTIONS (3)
  - ARRHYTHMIA [None]
  - CHEST PAIN [None]
  - SYNCOPE [None]
